FAERS Safety Report 18061554 (Version 1)
Quarter: 2020Q3

REPORT INFORMATION
  Report Type: Spontaneous
  Country: US (occurrence: US)
  Receive Date: 20200723
  Receipt Date: 20200723
  Transmission Date: 20201103
  Serious: No
  Sender: FDA-Public Use
  Company Number: US-AMGEN-USASP2020115615

PATIENT
  Age: 67 Year
  Sex: Female

DRUGS (1)
  1. PROLIA [Suspect]
     Active Substance: DENOSUMAB
     Indication: OSTEOPOROSIS POSTMENOPAUSAL
     Dosage: 60 MILLIGRAM, Q6MO
     Route: 065
     Dates: start: 2016, end: 2020

REACTIONS (6)
  - Pain in extremity [Recovering/Resolving]
  - Exostosis of jaw [Recovering/Resolving]
  - Arthralgia [Recovering/Resolving]
  - Bone density abnormal [Unknown]
  - Back pain [Recovering/Resolving]
  - Tooth extraction [Recovering/Resolving]

NARRATIVE: CASE EVENT DATE: 2020
